FAERS Safety Report 6326394-8 (Version None)
Quarter: 2009Q3

REPORT INFORMATION
  Report Type: 
  Country: None (occurrence: None)
  Receive Date: 20090824
  Receipt Date: 20090811
  Transmission Date: 20100115
  Serious: Yes (Hospitalization, Disabling)
  Sender: FDA-Public Use
  Company Number: US-ELI_LILLY_AND_COMPANY-US200908002458

PATIENT
  Age: 77 Year
  Sex: Male

DRUGS (3)
  1. CYMBALTA [Suspect]
  2. AVONEX [Concomitant]
     Indication: MULTIPLE SCLEROSIS
     Dosage: 30 UG, WEEKLY (1/W)
     Route: 030
     Dates: start: 20060612, end: 20090501
  3. HYPNOTICS AND SEDATIVES [Concomitant]
     Indication: INSOMNIA

REACTIONS (1)
  - ABASIA [None]
